FAERS Safety Report 4620106-1 (Version None)
Quarter: 2005Q1

REPORT INFORMATION
  Report Type: 
  Country: None (occurrence: None)
  Receive Date: 20050323
  Receipt Date: 20050323
  Transmission Date: 20050727
  Serious: Yes (Death)
  Sender: FDA-Public Use
  Company Number: None

PATIENT
  Age: 61 Year
  Sex: Male
  Weight: 59.4212 kg

DRUGS (1)
  1. PACLITAXEL [Suspect]

REACTIONS (2)
  - DISEASE PROGRESSION [None]
  - HYPERSENSITIVITY [None]
